APPROVED DRUG PRODUCT: CITALOPRAM HYDROBROMIDE
Active Ingredient: CITALOPRAM HYDROBROMIDE
Strength: EQ 20MG BASE
Dosage Form/Route: TABLET;ORAL
Application: A077141 | Product #002
Applicant: NATCO PHARMA LTD
Approved: Apr 10, 2008 | RLD: No | RS: No | Type: DISCN